FAERS Safety Report 6156538-2 (Version None)
Quarter: 2009Q2

REPORT INFORMATION
  Report Type: 
  Country: None (occurrence: None)
  Receive Date: 20090416
  Receipt Date: 20090406
  Transmission Date: 20091009
  Serious: Yes (Other)
  Sender: FDA-Public Use
  Company Number: AR-TEVA-190571ISR

PATIENT
  Age: 67 Year
  Sex: Male

DRUGS (3)
  1. VALPROIC ACID [Suspect]
     Indication: HUNTINGTON'S CHOREA
  2. RIVASTIGMINE TARTRATE [Concomitant]
     Indication: HUNTINGTON'S CHOREA
  3. PAROXETINE HCL [Concomitant]

REACTIONS (2)
  - PARKINSONISM [None]
  - PLEUROTHOTONUS [None]
